FAERS Safety Report 13244427 (Version 2)
Quarter: 2017Q1

REPORT INFORMATION
  Report Type: Spontaneous
  Country: US (occurrence: US)
  Receive Date: 20170216
  Receipt Date: 20170309
  Transmission Date: 20170428
  Serious: No
  Sender: FDA-Public Use
  Company Number: US-JAZZ-2016-US-022776

PATIENT
  Sex: Male

DRUGS (25)
  1. XYREM [Suspect]
     Active Substance: SODIUM OXYBATE
     Dosage: 4.5 G, BID
     Route: 048
     Dates: start: 201101
  2. BUPROPION HCL [Concomitant]
     Active Substance: BUPROPION HYDROCHLORIDE
  3. NORCO [Concomitant]
     Active Substance: ACETAMINOPHEN\HYDROCODONE BITARTRATE
  4. SEROQUEL [Concomitant]
     Active Substance: QUETIAPINE FUMARATE
  5. TUDORZA PRESSAIR [Concomitant]
     Active Substance: ACLIDINIUM BROMIDE
  6. VICODIN [Concomitant]
     Active Substance: ACETAMINOPHEN\HYDROCODONE BITARTRATE
  7. XYREM [Suspect]
     Active Substance: SODIUM OXYBATE
     Indication: NARCOLEPSY
     Dosage: 2.25 G, BID
     Route: 048
     Dates: start: 201009, end: 2010
  8. MELOXICAM. [Concomitant]
     Active Substance: MELOXICAM
  9. XYREM [Suspect]
     Active Substance: SODIUM OXYBATE
     Dosage: DOSE ADJUSTMENT
     Route: 048
     Dates: start: 2010, end: 2010
  10. OXCARBAZEPINE. [Concomitant]
     Active Substance: OXCARBAZEPINE
  11. OXYCODONE AND ACETAMINOPHEN [Concomitant]
     Active Substance: ACETAMINOPHEN\OXYCODONE HYDROCHLORIDE
  12. ORPHENADRINE [Concomitant]
     Active Substance: ORPHENADRINE
  13. RISPERDAL [Concomitant]
     Active Substance: RISPERIDONE
  14. MECLIZINE [Concomitant]
     Active Substance: MECLIZINE HYDROCHLORIDE
  15. OMEPRAZOLE. [Concomitant]
     Active Substance: OMEPRAZOLE
  16. ATORVASTATIN [Concomitant]
     Active Substance: ATORVASTATIN
  17. NUVIGIL [Concomitant]
     Active Substance: ARMODAFINIL
  18. BACLOFEN. [Concomitant]
     Active Substance: BACLOFEN
  19. WELLBUTRIN [Concomitant]
     Active Substance: BUPROPION HYDROCHLORIDE
  20. CLONAZEPAM. [Concomitant]
     Active Substance: CLONAZEPAM
  21. CONCERTA [Concomitant]
     Active Substance: METHYLPHENIDATE HYDROCHLORIDE
  22. PROAIR HFA [Concomitant]
     Active Substance: ALBUTEROL SULFATE
  23. NICOTINE. [Concomitant]
     Active Substance: NICOTINE
  24. TRILEPTAL [Concomitant]
     Active Substance: OXCARBAZEPINE
  25. PROVIGIL [Concomitant]
     Active Substance: MODAFINIL

REACTIONS (2)
  - Product taste abnormal [Unknown]
  - Thinking abnormal [Unknown]
